FAERS Safety Report 14567885 (Version 1)
Quarter: 2018Q1

REPORT INFORMATION
  Report Type: Spontaneous
  Country: US (occurrence: US)
  Receive Date: 20180223
  Receipt Date: 20180223
  Transmission Date: 20180509
  Serious: Yes (Other)
  Sender: FDA-Public Use
  Company Number: US-DSJP-DSU-2017-143641

PATIENT

DRUGS (1)
  1. BENICAR HCT [Suspect]
     Active Substance: HYDROCHLOROTHIAZIDE\OLMESARTAN MEDOXOMIL
     Indication: HYPERTENSION
     Dosage: 40/25 MG, QD
     Dates: start: 20131120, end: 20161124

REACTIONS (9)
  - Peptic ulcer [Unknown]
  - Gastrooesophageal reflux disease [Not Recovered/Not Resolved]
  - Constipation [Unknown]
  - Colitis [Unknown]
  - Appendicitis [Recovered/Resolved]
  - Gallbladder disorder [Recovered/Resolved]
  - Large intestine polyp [Recovered/Resolved]
  - Hiatus hernia [Unknown]
  - Helicobacter gastritis [Unknown]

NARRATIVE: CASE EVENT DATE: 2014
